FAERS Safety Report 20108023 (Version 1)
Quarter: 2021Q4

REPORT INFORMATION
  Report Type: Spontaneous
  Country: KR (occurrence: KR)
  Receive Date: 20211124
  Receipt Date: 20211124
  Transmission Date: 20220303
  Serious: Yes (Other)
  Sender: FDA-Public Use
  Company Number: KR-009507513-2111KOR007517

PATIENT
  Age: 31 Year
  Sex: Female
  Weight: 91 kg

DRUGS (26)
  1. PREVYMIS [Suspect]
     Active Substance: LETERMOVIR
     Indication: Antiviral prophylaxis
     Dosage: ONCE DAILY, 480 MILLIGRAM
     Route: 048
     Dates: start: 20201229, end: 20210319
  2. I.V. GLOBULIN SN [Concomitant]
     Indication: Infection prophylaxis
     Dosage: 250 MILLIGRAM, QD; STRENGTH: 10 %, 10 ML
     Route: 042
     Dates: start: 20201230, end: 20201230
  3. I.V. GLOBULIN SN [Concomitant]
     Indication: Infection prophylaxis
     Dosage: 2500 MILLIGRAM, QD; STRENGTH: 10 %, 25 ML
     Route: 042
     Dates: start: 20201230, end: 20201230
  4. I.V. GLOBULIN SN [Concomitant]
     Indication: Infection prophylaxis
     Dosage: 40000 MILLIGRAM, QD; STRENGTH: 10 %, 200 ML
     Route: 042
     Dates: start: 20201216, end: 20210114
  5. ZOYLEX [ACICLOVIR] [Concomitant]
     Indication: Prophylaxis
     Dosage: 400 MILLIGRAM, BID
     Route: 042
     Dates: start: 20201215, end: 20210104
  6. TACROBELL [TACROLIMUS MONOHYDRATE] [Concomitant]
     Indication: Prophylaxis against graft versus host disease
     Dosage: 1.1 MILLIGRAM, QD
     Route: 042
     Dates: start: 20201218, end: 20201224
  7. TACROBELL [TACROLIMUS MONOHYDRATE] [Concomitant]
     Dosage: 0.9 MILLIGRAM, QD
     Route: 042
     Dates: start: 20201225, end: 20210104
  8. LENOGRASTIM [Concomitant]
     Active Substance: LENOGRASTIM
     Indication: Acute lymphocytic leukaemia
     Dosage: 200 MICROGRAM, QD
     Route: 042
     Dates: start: 20201216, end: 20210102
  9. LENOGRASTIM [Concomitant]
     Active Substance: LENOGRASTIM
     Indication: Acute lymphocytic leukaemia
     Dosage: 250 MICROGRAM, QD
     Route: 042
     Dates: start: 20201216, end: 20210314
  10. MYCAMINE [Concomitant]
     Active Substance: MICAFUNGIN SODIUM
     Indication: Antifungal prophylaxis
     Dosage: 50 MILLIGRAM, QD
     Route: 042
     Dates: start: 20201130, end: 20210101
  11. MYCOPHENOLATE MOFETIL [Concomitant]
     Active Substance: MYCOPHENOLATE MOFETIL
     Indication: Prophylaxis against graft versus host disease
     Dosage: 2 TABLETS, BID
     Route: 048
     Dates: start: 20201209
  12. K CAB [Concomitant]
     Indication: Gastrooesophageal reflux prophylaxis
     Dosage: 50 MILLIGRAM (1 TABLET), QD
     Route: 048
     Dates: start: 20200525
  13. K CAB [Concomitant]
     Indication: Gastritis prophylaxis
  14. URSODIOL [Concomitant]
     Active Substance: URSODIOL
     Indication: Drug toxicity prophylaxis
     Dosage: 100 MILLIGRAM (1 TABLET), TID
     Route: 048
     Dates: start: 20200521
  15. FOLIC ACID [Concomitant]
     Active Substance: FOLIC ACID
     Indication: Anaemia prophylaxis
     Dosage: 1 MILLIGRAM (1 TABLET), QD
     Route: 048
     Dates: start: 20201129
  16. SULFAMETHOXAZOLE\TRIMETHOPRIM [Concomitant]
     Active Substance: SULFAMETHOXAZOLE\TRIMETHOPRIM
     Indication: Infection prophylaxis
     Dosage: 1 TABLET, QD
     Route: 048
     Dates: start: 20201129
  17. MEROPENEM [Concomitant]
     Active Substance: MEROPENEM
     Indication: Soft tissue infection
     Dosage: 1000 MILLIGRAM, TID
     Route: 042
     Dates: start: 20201222, end: 20201223
  18. MEROPENEM [Concomitant]
     Active Substance: MEROPENEM
     Indication: Skin infection
     Dosage: 1000 MILLIGRAM, QD
     Route: 042
     Dates: start: 20201224, end: 20201224
  19. MEROPENEM [Concomitant]
     Active Substance: MEROPENEM
     Dosage: 1000 MILLIGRAM, QID
     Route: 042
     Dates: start: 20210103, end: 20210103
  20. MEROPENEM [Concomitant]
     Active Substance: MEROPENEM
     Dosage: 1000 MILLIGRAM, TID
     Route: 042
     Dates: start: 20210104, end: 20210106
  21. PREPENEM [Concomitant]
     Indication: Soft tissue infection
     Dosage: 500 MILLIGRAM, TID
     Route: 042
     Dates: start: 20201224, end: 20201224
  22. PREPENEM [Concomitant]
     Indication: Skin infection
     Dosage: 500 MILLIGRAM, QID
     Route: 042
     Dates: start: 20201225, end: 20210102
  23. TEICOCIN [Concomitant]
     Indication: Soft tissue infection
     Dosage: 400 MILLIGRAM, QD
     Route: 042
     Dates: start: 20201214, end: 20201222
  24. TEICOCIN [Concomitant]
     Indication: Skin infection
  25. TAZOPERAN [Concomitant]
     Indication: Soft tissue infection
     Dosage: 4.5 GRAM, TID
     Route: 042
     Dates: start: 20201213, end: 20201221
  26. TAZOPERAN [Concomitant]
     Indication: Skin infection

REACTIONS (1)
  - Cytomegalovirus colitis [Unknown]

NARRATIVE: CASE EVENT DATE: 20210415
